FAERS Safety Report 6270063-X (Version None)
Quarter: 2009Q3

REPORT INFORMATION
  Report Type: 
  Country: None (occurrence: None)
  Receive Date: 20090716
  Receipt Date: 20090707
  Transmission Date: 20100115
  Serious: Yes (Other)
  Sender: FDA-Public Use
  Company Number: US-JNJFOC-20090602590

PATIENT
  Sex: Female
  Weight: 113.85 kg

DRUGS (1)
  1. DOXIL [Suspect]
     Indication: ENDOMETRIAL CANCER
     Route: 042

REACTIONS (2)
  - BLOOD PRESSURE INCREASED [None]
  - INFUSION RELATED REACTION [None]
